APPROVED DRUG PRODUCT: SULFACETAMIDE SODIUM
Active Ingredient: SULFACETAMIDE SODIUM
Strength: 10%
Dosage Form/Route: SOLUTION/DROPS;OPHTHALMIC
Application: A040066 | Product #001 | TE Code: AT
Applicant: BAUSCH AND LOMB PHARMACEUTICALS INC
Approved: Dec 28, 1994 | RLD: No | RS: Yes | Type: RX